FAERS Safety Report 7920964 (Version 2)
Quarter: 2015Q1

REPORT INFORMATION
  Report Type: Report from Study
  Country: US (occurrence: US)
  Receive Date: 20110429
  Receipt Date: 20150103
  Transmission Date: 20150721
  Serious: No
  Sender: FDA-Public Use
  Company Number: US-ASTRAZENECA-2010SE27628

PATIENT
  Age: 74 Year
  Sex: Male

DRUGS (1)
  1. NEXIUM [Suspect]
     Active Substance: ESOMEPRAZOLE MAGNESIUM
     Route: 048

REACTIONS (8)
  - Tinnitus [Not Recovered/Not Resolved]
  - Drug dose omission [Unknown]
  - Dyspnoea [Unknown]
  - Abdominal discomfort [Unknown]
  - Chest discomfort [Unknown]
  - Hypoacusis [Unknown]
  - Chest pain [Unknown]
  - Insomnia [Unknown]
